FAERS Safety Report 23929671 (Version 1)
Quarter: 2024Q2

REPORT INFORMATION
  Report Type: Spontaneous
  Country: IT (occurrence: IT)
  Receive Date: 20240601
  Receipt Date: 20240601
  Transmission Date: 20240716
  Serious: Yes (Death, Life-Threatening, Hospitalization, Other)
  Sender: FDA-Public Use
  Company Number: IT-MINISAL02-986379

PATIENT
  Age: 82 Year
  Sex: Female

DRUGS (11)
  1. FLECAINIDE [Suspect]
     Active Substance: FLECAINIDE
     Indication: Tachycardia
     Dosage: 100 MILLIGRAM (100MG*2/DAY ON 02/29/2024100MG*3/DAY ON 03/01/2024 THEN STOP)
     Route: 048
     Dates: start: 20240229, end: 20240301
  2. FLECAINIDE [Suspect]
     Active Substance: FLECAINIDE
     Dosage: 100 MILLIGRAM (FLECAINIDE 100 MG 3 TIMES A DAY A FEW DAYS BEFORE THE DATE OF HOSPITALIZATION)
     Route: 048
     Dates: start: 202403
  3. ELIQUIS [Concomitant]
     Active Substance: APIXABAN
     Indication: Product used for unknown indication
     Dosage: 2.5 MILLIGRAM (1 TABLET TWICE A DAY)
     Route: 065
  4. TORSEMIDE [Concomitant]
     Active Substance: TORSEMIDE
     Indication: Product used for unknown indication
     Dosage: 5 MILLIGRAM (1 TABLET DAILY)
     Route: 048
  5. TELMISARTAN [Concomitant]
     Active Substance: TELMISARTAN
     Indication: Product used for unknown indication
     Dosage: 40 MILLIGRAM (1 TABLET DAILY)
     Route: 048
  6. EZETIMIBE [Concomitant]
     Active Substance: EZETIMIBE
     Indication: Product used for unknown indication
     Dosage: 10 MILLIGRAM (1 TABLET DAILY)
     Route: 048
  7. ROSUVASTATIN [Concomitant]
     Active Substance: ROSUVASTATIN
     Indication: Product used for unknown indication
     Dosage: 20 MILLIGRAM (1 TABLET DAILY)
     Route: 048
  8. PANTOPRAZOLE [Concomitant]
     Active Substance: PANTOPRAZOLE
     Indication: Product used for unknown indication
     Dosage: 20 MILLIGRAM (1 TABLET DAILY)
     Route: 065
  9. METFORMIN [Concomitant]
     Active Substance: METFORMIN HYDROCHLORIDE
     Indication: Product used for unknown indication
     Dosage: 500 MILLIGRAM (1 TABLET 2 TIMES A DAY)
     Route: 048
  10. EN [Concomitant]
     Active Substance: DELORAZEPAM
     Indication: Product used for unknown indication
     Dosage: 10 GTT DAILY (DOSE NOT AVAILABLE)
     Route: 048
  11. ALLOPURINOL [Concomitant]
     Active Substance: ALLOPURINOL
     Indication: Product used for unknown indication
     Dosage: 150 MILLIGRAM (1 TABLET DAILY)
     Route: 048

REACTIONS (3)
  - Cardiac arrest [Fatal]
  - Syncope [Fatal]
  - Tachycardia [Fatal]

NARRATIVE: CASE EVENT DATE: 20240305
